FAERS Safety Report 5005872-8 (Version None)
Quarter: 2006Q2

REPORT INFORMATION
  Report Type: 
  Country: None (occurrence: None)
  Receive Date: 20060517
  Receipt Date: 20060517
  Transmission Date: 20061013
  Serious: Yes (Hospitalization)
  Sender: FDA-Public Use
  Company Number: None

PATIENT
  Age: 57 Year
  Sex: Male

DRUGS (4)
  1. TEMOZOLOMIDE [Suspect]
     Indication: NEOPLASM MALIGNANT
     Dosage: 100 MG QD
     Dates: start: 20051201
  2. FUROSEMIDE [Suspect]
     Dosage: 40 MG BID
     Dates: start: 20041201
  3. LISNIOPRIL [Concomitant]
  4. PHENYTOIN [Concomitant]

REACTIONS (2)
  - ILL-DEFINED DISORDER [None]
  - RENAL FAILURE ACUTE [None]
